FAERS Safety Report 10073107 (Version 1)
Quarter: 2014Q2

REPORT INFORMATION
  Report Type: Report from Study
  Country: US (occurrence: US)
  Receive Date: 20140411
  Receipt Date: 20140411
  Transmission Date: 20141212
  Serious: Yes (Other)
  Sender: FDA-Public Use
  Company Number: US-UCBSA-117905

PATIENT
  Sex: Female

DRUGS (3)
  1. CIMZIA [Suspect]
     Indication: CROHN^S DISEASE
     Dates: start: 201401, end: 2014
  2. IMURAN [Suspect]
     Dates: end: 2014
  3. IMURAN [Suspect]
     Dates: start: 2014

REACTIONS (2)
  - Thrombocytopenia [Unknown]
  - White blood cell count decreased [Unknown]
